FAERS Safety Report 10056566 (Version 1)
Quarter: 2014Q2

REPORT INFORMATION
  Report Type: Spontaneous
  Country: US (occurrence: US)
  Receive Date: 20140403
  Receipt Date: 20140403
  Transmission Date: 20141212
  Serious: No
  Sender: FDA-Public Use
  Company Number: US-PFIZER INC-2014092898

PATIENT
  Age: 71 Year
  Sex: Male
  Weight: 70.75 kg

DRUGS (4)
  1. CELEBREX [Suspect]
     Indication: PSORIATIC ARTHROPATHY
     Dosage: UNK
  2. CELEBREX [Suspect]
     Dosage: UNK
  3. CELEBREX [Suspect]
     Dosage: UNK
     Dates: end: 20140330
  4. DIOVAN [Concomitant]
     Indication: BLOOD PRESSURE
     Dosage: UNK

REACTIONS (1)
  - Contusion [Unknown]
